FAERS Safety Report 8557677-9 (Version None)
Quarter: 2012Q3

REPORT INFORMATION
  Report Type: 
  Country: None (occurrence: None)
  Receive Date: 20120801
  Receipt Date: 20120726
  Transmission Date: 20120928
  Serious: Yes (Hospitalization, Other)
  Sender: FDA-Public Use
  Company Number: JP-ABBOTT-12P-087-0925738-00

PATIENT
  Sex: Male
  Weight: 52 kg

DRUGS (17)
  1. DICLOFENAC SODIUM [Concomitant]
     Dates: start: 20100720, end: 20111121
  2. SHAKUYAKUKANZOTO [Concomitant]
     Indication: MUSCLE SPASMS
     Dosage: 2.5 GM DAILY DOSE
     Dates: start: 20110524, end: 20110801
  3. TACROLIMUS [Concomitant]
     Indication: RHEUMATOID ARTHRITIS
     Dosage: 1 MG DAILY DOSE
     Dates: start: 20101207, end: 20111107
  4. BROTIZOLAM [Concomitant]
     Indication: INSOMNIA
     Dosage: 0.25 MG DAILY DOSE
     Dates: start: 20100720
  5. AN EXTRACT FROM INFLAMMATORY RABBIT SKIN INOCULATED BY VACCINIA VIRUS [Concomitant]
     Indication: CERVICOBRACHIAL SYNDROME
     Dates: start: 20111122
  6. TIZANIDINE HYDROCHLORIDE [Concomitant]
     Indication: SPINAL OSTEOARTHRITIS
     Dosage: 2 MG DAILY DOSE
     Dates: start: 20100720
  7. PREGABALIN [Concomitant]
     Indication: SCIATICA
     Dosage: 50 MG DAILY DOSE
     Dates: start: 20110903, end: 20111121
  8. HUMIRA [Suspect]
     Dates: start: 20120228, end: 20120228
  9. HUMIRA [Suspect]
     Dates: start: 20120327
  10. EPINASTINE HYDROCHLORIDE [Concomitant]
     Indication: ALLERGY PROPHYLAXIS
     Dosage: 20 MG DAILY DOSE
     Dates: start: 20100720, end: 20110523
  11. LIMAPROST ALFADEX [Concomitant]
     Indication: LUMBAR SPINAL STENOSIS
     Dosage: 10 MCG DAILY DOSE
     Dates: start: 20110201
  12. HUMIRA [Suspect]
     Dates: start: 20111108, end: 20120214
  13. DICLOFENAC SODIUM [Concomitant]
     Indication: RHEUMATOID ARTHRITIS
     Dosage: 37.5 MG DAILY DOSE
     Dates: start: 20111122, end: 20120131
  14. VERAPAMIL HCL [Concomitant]
     Indication: PRODUCT USED FOR UNKNOWN INDICATION
     Dosage: 80 MG DAILY DOSE
     Dates: start: 20100720
  15. OMEPRAZOLE [Concomitant]
     Indication: PRODUCT USED FOR UNKNOWN INDICATION
     Dosage: 20 MG DAILY DOSE
     Dates: start: 20100720
  16. HUMIRA [Suspect]
     Indication: RHEUMATOID ARTHRITIS
     Route: 058
     Dates: start: 20100720, end: 20111025
  17. PROPAFENONE HYDROCHLORIDE [Concomitant]
     Indication: PRODUCT USED FOR UNKNOWN INDICATION
     Dosage: 200 MG DAILY DOSE
     Dates: start: 20100720, end: 20120201

REACTIONS (4)
  - PROTEINURIA [None]
  - NEPHROTIC SYNDROME [None]
  - PLEURAL EFFUSION [None]
  - BRAIN NATRIURETIC PEPTIDE ABNORMAL [None]
